FAERS Safety Report 6551736-8 (Version None)
Quarter: 2010Q1

REPORT INFORMATION
  Report Type: 
  Country: None (occurrence: None)
  Receive Date: 20100120
  Receipt Date: 20100105
  Transmission Date: 20100710
  Serious: Yes (Other)
  Sender: FDA-Public Use
  Company Number: 004139

PATIENT
  Age: 32 Year
  Sex: Female

DRUGS (4)
  1. LEVETIRACETAM [Suspect]
     Indication: CONVULSION
     Dosage: (1000 MG)(3000 MG), (DOSE REDUCED)
  2. CARBAMAZEPINE [Concomitant]
  3. CLOBAZAM [Concomitant]
  4. TOPIRAMATE [Concomitant]

REACTIONS (5)
  - DRUG EFFECT DECREASED [None]
  - DRUG EXPOSURE DURING PREGNANCY [None]
  - ERYTHEMA [None]
  - GRAND MAL CONVULSION [None]
  - PREGNANCY [None]
